FAERS Safety Report 9400739 (Version 2)
Quarter: 2013Q3

REPORT INFORMATION
  Report Type: Spontaneous
  Country: US (occurrence: US)
  Receive Date: 20130715
  Receipt Date: 20130726
  Transmission Date: 20140515
  Serious: Yes (Other)
  Sender: FDA-Public Use
  Company Number: US-BAYER-2013-083144

PATIENT
  Age: 22 Year
  Sex: Male
  Weight: 91 kg

DRUGS (1)
  1. BAYER ADVANCED ASPIRIN EXTRA STRENGTH [Suspect]
     Indication: TOOTHACHE
     Dosage: 2 DF, OTHER FREQUENCY
     Route: 048
     Dates: start: 20130629, end: 20130701

REACTIONS (4)
  - Faeces discoloured [Recovered/Resolved]
  - Faeces discoloured [Recovered/Resolved]
  - Haematochezia [Recovered/Resolved]
  - Headache [Not Recovered/Not Resolved]
